FAERS Safety Report 6143368-0 (Version None)
Quarter: 2009Q2

REPORT INFORMATION
  Report Type: 
  Country: None (occurrence: None)
  Receive Date: 20090403
  Receipt Date: 20090331
  Transmission Date: 20091009
  Serious: No
  Sender: FDA-Public Use
  Company Number: US-B.I. PHARMACEUTICALS,INC./RIDGEFIELD-2009-BP-04092BP

PATIENT
  Sex: Male

DRUGS (8)
  1. SPIRIVA [Suspect]
     Indication: OXYGEN SATURATION DECREASED
     Dosage: 18MCG
     Route: 055
     Dates: start: 20080801
  2. SPIRIVA [Suspect]
     Indication: DYSPNOEA
  3. PROAIR HFA [Concomitant]
     Indication: DYSPNOEA
  4. SYMBICORT [Concomitant]
     Indication: DYSPNOEA
  5. DIOVAN [Concomitant]
     Indication: HYPERTENSION
  6. METOPROLOL [Concomitant]
     Indication: HYPERTENSION
  7. SIMVASTATIN [Concomitant]
     Indication: BLOOD CHOLESTEROL INCREASED
  8. EXTRA STRENGTH TYLENOL [Concomitant]
     Indication: ARTHRITIS

REACTIONS (1)
  - DRUG INEFFECTIVE [None]
